FAERS Safety Report 10067856 (Version 1)
Quarter: 2014Q2

REPORT INFORMATION
  Report Type: Spontaneous
  Country: US (occurrence: None)
  Receive Date: 20140407
  Receipt Date: 20140407
  Transmission Date: 20141212
  Serious: Yes (Other)
  Sender: FDA-Public Use
  Company Number: 2014AP002500

PATIENT
  Age: 52 Year
  Sex: Female
  Weight: 52 kg

DRUGS (8)
  1. NICOTINE [Suspect]
     Indication: NICOTINE DEPENDENCE
     Route: 062
     Dates: start: 20140322
  2. TOPROL [Concomitant]
  3. LIPITOR [Concomitant]
  4. ABILIFY [Concomitant]
  5. LEXAPRO [Concomitant]
  6. TRAMADOL [Concomitant]
  7. NEURONTIN [Concomitant]
  8. BACTRIM [Concomitant]

REACTIONS (4)
  - Dizziness [None]
  - Dizziness [None]
  - Loss of consciousness [None]
  - Loss of consciousness [None]
